FAERS Safety Report 8301216-4 (Version None)
Quarter: 2012Q2

REPORT INFORMATION
  Report Type: 
  Country: None (occurrence: None)
  Receive Date: 20120420
  Receipt Date: 20120420
  Transmission Date: 20120825
  Serious: No
  Sender: FDA-Public Use
  Company Number: None

PATIENT
  Sex: Female
  Weight: 75.296 kg

DRUGS (2)
  1. IBUPROFEN [Concomitant]
     Dates: start: 20100301, end: 20100730
  2. NAPROXEN [Suspect]
     Dates: start: 20100301, end: 20100730

REACTIONS (1)
  - DRUG INEFFECTIVE [None]
